FAERS Safety Report 19027137 (Version 3)
Quarter: 2021Q3

REPORT INFORMATION
  Report Type: Spontaneous
  Country: US (occurrence: US)
  Receive Date: 20210318
  Receipt Date: 20210805
  Transmission Date: 20211014
  Serious: No
  Sender: FDA-Public Use
  Company Number: US-MYLANLABS-2021M1016087

PATIENT
  Age: 15 Year
  Sex: Female
  Weight: 53.52 kg

DRUGS (2)
  1. LANSOPRAZOLE DELAYED?RELEASE ORALLY DISINTEGRATING TABLETS [Suspect]
     Active Substance: LANSOPRAZOLE
     Dosage: 30 MILLIGRAM (QHS)
     Dates: start: 202102, end: 202103
  2. LANSOPRAZOLE DELAYED?RELEASE ORALLY DISINTEGRATING TABLETS [Suspect]
     Active Substance: LANSOPRAZOLE
     Indication: GASTROOESOPHAGEAL REFLUX DISEASE
     Dosage: UNK

REACTIONS (4)
  - Drug ineffective [Unknown]
  - Chest pain [Recovered/Resolved]
  - Throat irritation [Recovered/Resolved]
  - Reflux gastritis [Unknown]

NARRATIVE: CASE EVENT DATE: 202102
